FAERS Safety Report 7154336-4 (Version None)
Quarter: 2010Q4

REPORT INFORMATION
  Report Type: 
  Country: None (occurrence: None)
  Receive Date: 20101213
  Receipt Date: 20101201
  Transmission Date: 20110411
  Serious: Yes (Other)
  Sender: FDA-Public Use
  Company Number: US-ACTELION-A-NJ2010-41689

PATIENT

DRUGS (10)
  1. BOSENTAN TABLET 62.5 MG US [Suspect]
     Indication: PULMONARY ARTERIAL HYPERTENSION
     Dosage: 62.5 MG, BID
     Route: 048
     Dates: start: 20101026, end: 20101104
  2. DILTIAZEM [Concomitant]
  3. NEXIUM [Concomitant]
  4. FUROSEMIDE [Concomitant]
  5. ACETYLSALICYLIC ACID [Concomitant]
  6. OSCAL D [Concomitant]
  7. POTASSIUM CHLORIDE [Concomitant]
  8. CYCLOBENZAPRINE [Concomitant]
  9. ZOLPIDEM [Concomitant]
  10. ALEVE (CAPLET) [Concomitant]

REACTIONS (3)
  - BLOOD PRESSURE INCREASED [None]
  - HEART RATE INCREASED [None]
  - TACHYCARDIA [None]
